FAERS Safety Report 6067376-3 (Version None)
Quarter: 2009Q1

REPORT INFORMATION
  Report Type: 
  Country: None (occurrence: None)
  Receive Date: 20090205
  Receipt Date: 20090127
  Transmission Date: 20090719
  Serious: Yes (Hospitalization)
  Sender: FDA-Public Use
  Company Number: JP-JNJFOC-20081001484

PATIENT
  Sex: Male
  Weight: 63 kg

DRUGS (15)
  1. REMICADE [Suspect]
     Route: 042
  2. REMICADE [Suspect]
     Indication: RHEUMATOID ARTHRITIS
     Route: 042
  3. MOBIC [Concomitant]
     Indication: RHEUMATOID ARTHRITIS
     Route: 048
  4. RHEUMATREX [Concomitant]
     Indication: RHEUMATOID ARTHRITIS
     Route: 048
  5. FOLIAMIN [Concomitant]
     Indication: FOLATE DEFICIENCY
     Route: 048
  6. SACCORTIN [Concomitant]
     Indication: RHEUMATOID ARTHRITIS
     Route: 048
  7. ALLOZYM [Concomitant]
     Indication: GOUT
     Route: 048
  8. MUCOSTA [Concomitant]
     Indication: GASTRITIS
     Route: 048
  9. PREDNISOLONE [Concomitant]
     Indication: RHEUMATOID ARTHRITIS
     Route: 048
  10. ASPIRIN [Concomitant]
     Indication: CEREBRAL INFARCTION
     Route: 048
  11. LASIX [Concomitant]
     Indication: OEDEMA DUE TO RENAL DISEASE
     Route: 048
  12. NORVASC [Concomitant]
     Indication: HYPERTENSION
     Route: 048
  13. GLIMICRON [Concomitant]
     Indication: DIABETES MELLITUS
     Route: 048
  14. LANSORAL [Concomitant]
     Indication: REFLUX OESOPHAGITIS
     Route: 048
  15. HYPADIL [Concomitant]
     Indication: HYPERTENSION
     Route: 048

REACTIONS (3)
  - HEPATIC FUNCTION ABNORMAL [None]
  - RENAL IMPAIRMENT [None]
  - SALMONELLA SEPSIS [None]
